FAERS Safety Report 4938380-0 (Version None)
Quarter: 2006Q1

REPORT INFORMATION
  Report Type: 
  Country: None (occurrence: None)
  Receive Date: 20060302
  Receipt Date: 20060214
  Transmission Date: 20060701
  Serious: Yes (Death)
  Sender: FDA-Public Use
  Company Number: US200602000217

PATIENT
  Age: 78 Year
  Sex: Male

DRUGS (2)
  1. FORTEO [Suspect]
     Dates: start: 20050204, end: 20051020
  2. FORTEO [Concomitant]

REACTIONS (6)
  - LUNG CANCER METASTATIC [None]
  - METASTASES TO CHEST WALL [None]
  - METASTASES TO SOFT TISSUE [None]
  - METASTASIS [None]
  - METASTATIC NEOPLASM [None]
  - SARCOMA [None]
